FAERS Safety Report 10054042 (Version 2)
Quarter: 2016Q1

REPORT INFORMATION
  Report Type: Report from Study
  Country: US (occurrence: US)
  Receive Date: 20140402
  Receipt Date: 20160311
  Transmission Date: 20160525
  Serious: No
  Sender: FDA-Public Use
  Company Number: US-AMGEN-USASP2014017074

PATIENT
  Age: 74 Year
  Sex: Male

DRUGS (3)
  1. ENBREL [Suspect]
     Active Substance: ETANERCEPT
     Indication: RHEUMATOID ARTHRITIS
     Dosage: 50 MG, QWK
     Route: 065
     Dates: start: 20130101
  2. ENBREL [Suspect]
     Active Substance: ETANERCEPT
     Dosage: UNK
     Route: 065
  3. METHOTREXATE [Concomitant]
     Active Substance: METHOTREXATE
     Dosage: 10 TABLETS, QWK

REACTIONS (14)
  - Chills [Unknown]
  - Tremor [Unknown]
  - Night sweats [Unknown]
  - Hypoacusis [Unknown]
  - Gait disturbance [Unknown]
  - Pyrexia [Unknown]
  - Pain in jaw [Not Recovered/Not Resolved]
  - Asthenia [Unknown]
  - Arthralgia [Recovered/Resolved]
  - Musculoskeletal pain [Recovered/Resolved]
  - Blood pressure abnormal [Unknown]
  - Muscular weakness [Not Recovered/Not Resolved]
  - Anaemia [Unknown]
  - Inflammation [Unknown]

NARRATIVE: CASE EVENT DATE: 20140308
